FAERS Safety Report 10470970 (Version 3)
Quarter: 2014Q4

REPORT INFORMATION
  Report Type: Spontaneous
  Country: PL (occurrence: PL)
  Receive Date: 20140923
  Receipt Date: 20141013
  Transmission Date: 20150528
  Serious: Yes (Hospitalization, Other)
  Sender: FDA-Public Use
  Company Number: PHHY2014PL119366

PATIENT
  Age: 11 Year
  Sex: Male
  Weight: 47 kg

DRUGS (6)
  1. EXJADE [Suspect]
     Active Substance: DEFERASIROX
     Indication: HAEMOSIDEROSIS
     Dosage: 1000 MG, QD
     Route: 048
     Dates: start: 20140812, end: 20140829
  2. EXJADE [Suspect]
     Active Substance: DEFERASIROX
     Dosage: 500 MG, UNK
     Dates: start: 20140925
  3. CYCLOSPORINE. [Concomitant]
     Active Substance: CYCLOSPORINE
     Indication: APLASTIC ANAEMIA
     Dosage: 2 DF, UNK
     Route: 048
     Dates: start: 20140121
  4. BACTRIM [Concomitant]
     Active Substance: SULFAMETHOXAZOLE\TRIMETHOPRIM
     Indication: PROPHYLAXIS
     Dosage: 2 DF,EVERY 2 HOURS
     Route: 048
     Dates: start: 20140121
  5. CYCLONAMINE [Concomitant]
     Active Substance: ETHAMSYLATE
     Indication: PLATELET COUNT DECREASED
     Dosage: 3 DF, UNK
     Route: 065
     Dates: start: 20140102
  6. NYSTATIN. [Concomitant]
     Active Substance: NYSTATIN
     Indication: FUNGAL INFECTION
     Dosage: 2 DF, UNK
     Route: 065
     Dates: start: 20140310

REACTIONS (14)
  - Renal failure [Recovered/Resolved]
  - Blood creatinine increased [Recovered/Resolved]
  - Jaundice cholestatic [Recovered/Resolved]
  - Serum ferritin increased [Recovered/Resolved]
  - Blood triglycerides increased [Recovered/Resolved]
  - Hypercholesterolaemia [Recovered/Resolved]
  - Transaminases increased [Recovered/Resolved]
  - Haemoglobin decreased [Recovered/Resolved]
  - Leukopenia [Recovered/Resolved]
  - Metabolic acidosis [Recovered/Resolved]
  - Hepatitis [Recovered/Resolved]
  - Cholestasis [Recovered/Resolved]
  - Thrombocytopenia [Recovered/Resolved]
  - Blood iron increased [Recovered/Resolved]

NARRATIVE: CASE EVENT DATE: 20140829
